FAERS Safety Report 17324259 (Version 1)
Quarter: 2020Q1

REPORT INFORMATION
  Report Type: Spontaneous
  Country: US (occurrence: US)
  Receive Date: 20200124
  Receipt Date: 20200124
  Transmission Date: 20200409
  Serious: Yes (Life-Threatening, Hospitalization, Disabling, Other)
  Sender: FDA-Public Use
  Company Number: None

PATIENT
  Age: 54 Year
  Sex: Female
  Weight: 59.4 kg

DRUGS (1)
  1. VIVITROL [Suspect]
     Active Substance: NALTREXONE
     Indication: ALCOHOLISM
     Dosage: ?          QUANTITY:1 INJECTION(S);OTHER FREQUENCY:1 INJECTION;?
     Route: 058
     Dates: start: 20191016

REACTIONS (7)
  - Injection site haemorrhage [None]
  - Injection site discolouration [None]
  - Injection site haematoma [None]
  - Injection site necrosis [None]
  - Injection site pain [None]
  - Injection site induration [None]
  - Injection site mass [None]

NARRATIVE: CASE EVENT DATE: 20191104
